FAERS Safety Report 25772278 (Version 1)
Quarter: 2025Q3

REPORT INFORMATION
  Report Type: Report from Study
  Country: CA (occurrence: CA)
  Receive Date: 20250908
  Receipt Date: 20250908
  Transmission Date: 20251021
  Serious: Yes (Hospitalization, Other)
  Sender: CELLTRION
  Company Number: CA-CELLTRION INC.-2025CA031422

PATIENT

DRUGS (38)
  1. OMALIZUMAB [Suspect]
     Active Substance: OMALIZUMAB
     Indication: Asthma
     Route: 058
  2. OMALIZUMAB [Suspect]
     Active Substance: OMALIZUMAB
     Indication: Asthma
     Route: 058
  3. OMALIZUMAB [Suspect]
     Active Substance: OMALIZUMAB
     Route: 058
  4. OMALIZUMAB [Suspect]
     Active Substance: OMALIZUMAB
     Route: 058
  5. OMALIZUMAB [Suspect]
     Active Substance: OMALIZUMAB
     Route: 058
  6. OMALIZUMAB [Suspect]
     Active Substance: OMALIZUMAB
     Route: 058
  7. OMALIZUMAB [Suspect]
     Active Substance: OMALIZUMAB
     Route: 058
  8. OMALIZUMAB [Suspect]
     Active Substance: OMALIZUMAB
     Route: 058
  9. OMALIZUMAB [Suspect]
     Active Substance: OMALIZUMAB
     Route: 058
  10. OMALIZUMAB [Suspect]
     Active Substance: OMALIZUMAB
     Route: 058
  11. OMALIZUMAB [Suspect]
     Active Substance: OMALIZUMAB
     Route: 058
  12. OMALIZUMAB [Suspect]
     Active Substance: OMALIZUMAB
     Route: 058
  13. OMALIZUMAB [Suspect]
     Active Substance: OMALIZUMAB
     Route: 058
  14. OMALIZUMAB [Suspect]
     Active Substance: OMALIZUMAB
     Route: 058
  15. OMALIZUMAB [Suspect]
     Active Substance: OMALIZUMAB
     Route: 058
  16. OMALIZUMAB [Suspect]
     Active Substance: OMALIZUMAB
     Route: 058
  17. OMALIZUMAB [Suspect]
     Active Substance: OMALIZUMAB
     Route: 058
  18. OMALIZUMAB [Suspect]
     Active Substance: OMALIZUMAB
     Route: 058
  19. OMALIZUMAB [Suspect]
     Active Substance: OMALIZUMAB
     Route: 058
  20. OMALIZUMAB [Suspect]
     Active Substance: OMALIZUMAB
     Route: 058
  21. OMALIZUMAB [Suspect]
     Active Substance: OMALIZUMAB
     Route: 058
  22. OMALIZUMAB [Suspect]
     Active Substance: OMALIZUMAB
     Route: 058
  23. OMALIZUMAB [Suspect]
     Active Substance: OMALIZUMAB
     Route: 058
  24. OMALIZUMAB [Suspect]
     Active Substance: OMALIZUMAB
     Route: 058
  25. OMALIZUMAB [Suspect]
     Active Substance: OMALIZUMAB
     Route: 058
  26. OMALIZUMAB [Suspect]
     Active Substance: OMALIZUMAB
     Route: 058
  27. OMALIZUMAB [Suspect]
     Active Substance: OMALIZUMAB
     Route: 058
  28. OMALIZUMAB [Suspect]
     Active Substance: OMALIZUMAB
     Dosage: 300 MILLIGRAM, 1 EVERY MONTH
     Route: 058
  29. BUDESONIDE\FORMOTEROL [Concomitant]
     Active Substance: BUDESONIDE\FORMOTEROL
     Indication: Product used for unknown indication
     Route: 065
  30. BUDESONIDE\FORMOTEROL [Concomitant]
     Active Substance: BUDESONIDE\FORMOTEROL
     Route: 065
  31. CEFUROXIME [Concomitant]
     Active Substance: CEFUROXIME
     Indication: Product used for unknown indication
     Route: 065
  32. DEXAMETHASONE [Concomitant]
     Active Substance: DEXAMETHASONE
     Indication: Product used for unknown indication
     Route: 065
  33. AZITHROMYCIN ANHYDROUS [Concomitant]
     Active Substance: AZITHROMYCIN ANHYDROUS
     Indication: Prophylaxis
     Route: 065
  34. SPIRIVA [Concomitant]
     Active Substance: TIOTROPIUM BROMIDE MONOHYDRATE
     Indication: Product used for unknown indication
     Route: 065
  35. SPIRIVA [Concomitant]
     Active Substance: TIOTROPIUM BROMIDE MONOHYDRATE
     Indication: Product used for unknown indication
     Route: 065
  36. VENTOLIN [Concomitant]
     Active Substance: ALBUTEROL SULFATE
     Indication: Product used for unknown indication
     Dosage: 1 EVERY 1 WEEK
     Route: 065
  37. VENTOLIN [Concomitant]
     Active Substance: ALBUTEROL SULFATE
     Indication: Product used for unknown indication
     Route: 065
  38. VENTOLIN [Concomitant]
     Active Substance: ALBUTEROL SULFATE
     Route: 065

REACTIONS (59)
  - Dry throat [Not Recovered/Not Resolved]
  - Asthenia [Not Recovered/Not Resolved]
  - Asthma [Not Recovered/Not Resolved]
  - Blood pressure systolic increased [Not Recovered/Not Resolved]
  - Body temperature decreased [Not Recovered/Not Resolved]
  - Bronchial secretion retention [Not Recovered/Not Resolved]
  - Duodenogastric reflux [Not Recovered/Not Resolved]
  - Chills [Not Recovered/Not Resolved]
  - Chlorine sensitivity [Not Recovered/Not Resolved]
  - Choking [Not Recovered/Not Resolved]
  - Conjunctival haemorrhage [Not Recovered/Not Resolved]
  - Dysphagia [Not Recovered/Not Resolved]
  - Dysphonia [Not Recovered/Not Resolved]
  - Dyspnoea [Not Recovered/Not Resolved]
  - Fall [Not Recovered/Not Resolved]
  - Staphylococcal infection [Not Recovered/Not Resolved]
  - Urinary tract infection [Not Recovered/Not Resolved]
  - COVID-19 [Not Recovered/Not Resolved]
  - Pain [Not Recovered/Not Resolved]
  - Pneumonia [Not Recovered/Not Resolved]
  - Fungal skin infection [Not Recovered/Not Resolved]
  - Influenza [Not Recovered/Not Resolved]
  - Gastroenteritis viral [Not Recovered/Not Resolved]
  - Bronchitis [Not Recovered/Not Resolved]
  - Nasopharyngitis [Not Recovered/Not Resolved]
  - Hyperhidrosis [Not Recovered/Not Resolved]
  - Foot fracture [Not Recovered/Not Resolved]
  - Forced expiratory flow decreased [Not Recovered/Not Resolved]
  - Food allergy [Not Recovered/Not Resolved]
  - Hypoventilation [Not Recovered/Not Resolved]
  - Lower limb fracture [Not Recovered/Not Resolved]
  - Middle insomnia [Not Recovered/Not Resolved]
  - Ocular hyperaemia [Not Recovered/Not Resolved]
  - Insomnia [Not Recovered/Not Resolved]
  - Oral mucosal blistering [Not Recovered/Not Resolved]
  - Oropharyngeal pain [Not Recovered/Not Resolved]
  - Pharyngeal swelling [Not Recovered/Not Resolved]
  - Productive cough [Not Recovered/Not Resolved]
  - Respiratory disorder [Not Recovered/Not Resolved]
  - Respiratory tract congestion [Not Recovered/Not Resolved]
  - Gait disturbance [Not Recovered/Not Resolved]
  - Sinus congestion [Not Recovered/Not Resolved]
  - Spinal fracture [Not Recovered/Not Resolved]
  - Sputum discoloured [Not Recovered/Not Resolved]
  - Upper limb fracture [Not Recovered/Not Resolved]
  - Rib fracture [Not Recovered/Not Resolved]
  - Vomiting [Not Recovered/Not Resolved]
  - Wheezing [Not Recovered/Not Resolved]
  - Abdominal pain [Not Recovered/Not Resolved]
  - Tendon rupture [Not Recovered/Not Resolved]
  - Chest discomfort [Not Recovered/Not Resolved]
  - Cough [Not Recovered/Not Resolved]
  - Illness [Not Recovered/Not Resolved]
  - Nausea [Not Recovered/Not Resolved]
  - Weight increased [Not Recovered/Not Resolved]
  - Fatigue [Not Recovered/Not Resolved]
  - Injection site pain [Not Recovered/Not Resolved]
  - Diarrhoea [Not Recovered/Not Resolved]
  - Wrong technique in product usage process [Not Recovered/Not Resolved]
